FAERS Safety Report 13362512 (Version 6)
Quarter: 2019Q4

REPORT INFORMATION
  Report Type: Spontaneous
  Country: US (occurrence: US)
  Receive Date: 20170323
  Receipt Date: 20191213
  Transmission Date: 20200122
  Serious: No
  Sender: FDA-Public Use
  Company Number: US-PFIZER INC-2017119031

PATIENT
  Age: 85 Year
  Sex: Female
  Weight: 58.96 kg

DRUGS (4)
  1. PREMARIN [Suspect]
     Active Substance: ESTROGENS, CONJUGATED
     Dosage: UNK, 2X/WEEK (2 TIMES PER WEEK)
     Dates: start: 2012
  2. PREMARIN [Suspect]
     Active Substance: ESTROGENS, CONJUGATED
     Indication: VULVOVAGINAL DRYNESS
     Dosage: UNK
  3. PREMARIN [Suspect]
     Active Substance: ESTROGENS, CONJUGATED
     Dosage: UNK, WEEKLY (1 TIME PER WEEK ON SUNDAY)
     Route: 067
     Dates: start: 2017
  4. PREMARIN [Suspect]
     Active Substance: ESTROGENS, CONJUGATED
     Dosage: UNK, WEEKLY (1 TIME PER WEEK ON SUNDAY)

REACTIONS (7)
  - Sleep disorder [Unknown]
  - Malaise [Recovering/Resolving]
  - Off label use [Not Recovered/Not Resolved]
  - Eye disorder [Unknown]
  - Sciatica [Recovering/Resolving]
  - Product use issue [Not Recovered/Not Resolved]
  - Anxiety [Unknown]

NARRATIVE: CASE EVENT DATE: 2017
